FAERS Safety Report 6935060-7 (Version None)
Quarter: 2010Q3

REPORT INFORMATION
  Report Type: 
  Country: None (occurrence: None)
  Receive Date: 20100822
  Receipt Date: 20100810
  Transmission Date: 20110219
  Serious: Yes (Hospitalization)
  Sender: FDA-Public Use
  Company Number: PHHO2010FR04324

PATIENT
  Sex: Male
  Weight: 81.4 kg

DRUGS (5)
  1. MYCOPHENOLIC ACID [Suspect]
     Indication: RENAL TRANSPLANT
     Dosage: 1440 MG / DAY
     Route: 048
     Dates: start: 20100201, end: 20100319
  2. NEORAL [Suspect]
     Indication: RENAL TRANSPLANT
     Dosage: 400MG/DAY
     Route: 048
     Dates: start: 20100201, end: 20100319
  3. CORTANCYL [Suspect]
     Indication: RENAL TRANSPLANT
     Dosage: 14.5 MG/DAY
     Route: 048
  4. AMLODIPINE [Concomitant]
     Indication: HYPERTENSION
     Dosage: UNK
  5. RASILEZ (ALISKIREN) [Concomitant]
     Indication: HYPERTENSION
     Dosage: UNK

REACTIONS (2)
  - NEPHROSTOMY [None]
  - URINOMA [None]
